FAERS Safety Report 14519351 (Version 2)
Quarter: 2018Q1

REPORT INFORMATION
  Report Type: Spontaneous
  Country: US (occurrence: US)
  Receive Date: 20180212
  Receipt Date: 20180216
  Transmission Date: 20180509
  Serious: No
  Sender: FDA-Public Use
  Company Number: US-PFIZER INC-2018059341

PATIENT
  Age: 5 Decade
  Sex: Female

DRUGS (5)
  1. ALPRAZOLAM. [Concomitant]
     Active Substance: ALPRAZOLAM
     Indication: ANXIETY
     Dosage: 2 MG, AS NEEDED (UP TO 3 A DAY)
     Route: 048
  2. SOMA [Concomitant]
     Active Substance: CARISOPRODOL
     Indication: MUSCULOSKELETAL DISCOMFORT
     Dosage: UNK, AS NEEDED
     Route: 048
  3. CHANTIX [Suspect]
     Active Substance: VARENICLINE TARTRATE
     Indication: SMOKING CESSATION THERAPY
     Dosage: UNK
  4. LOSARTAN. [Concomitant]
     Active Substance: LOSARTAN
     Indication: HYPERTENSION
     Dosage: 100 MG, 1X/DAY
     Route: 048
  5. COREG [Concomitant]
     Active Substance: CARVEDILOL
     Indication: BLOOD PRESSURE ABNORMAL
     Dosage: UNK, 2X/DAY
     Route: 048

REACTIONS (3)
  - Condition aggravated [Recovered/Resolved]
  - Abnormal dreams [Recovered/Resolved]
  - Vomiting [Unknown]
